FAERS Safety Report 16716267 (Version 1)
Quarter: 2019Q3

REPORT INFORMATION
  Report Type: Spontaneous
  Country: US (occurrence: US)
  Receive Date: 20190819
  Receipt Date: 20190819
  Transmission Date: 20191005
  Serious: No
  Sender: FDA-Public Use
  Company Number: US-ACTELION-A-NJ2018-178703

PATIENT
  Age: 42 Year
  Sex: Male

DRUGS (4)
  1. SILDENAFIL. [Concomitant]
     Active Substance: SILDENAFIL
  2. LETAIRIS [Concomitant]
     Active Substance: AMBRISENTAN
     Dosage: UNK
  3. UPTRAVI [Suspect]
     Active Substance: SELEXIPAG
     Indication: PULMONARY ARTERIAL HYPERTENSION
     Dosage: 800 MCG, BID
     Route: 048
     Dates: start: 20170704
  4. ADCIRCA [Concomitant]
     Active Substance: TADALAFIL

REACTIONS (3)
  - Oedema peripheral [Unknown]
  - Dyspnoea [Unknown]
  - Gastrooesophageal reflux disease [Unknown]

NARRATIVE: CASE EVENT DATE: 20180831
